FAERS Safety Report 7499464-9 (Version None)
Quarter: 2011Q2

REPORT INFORMATION
  Report Type: 
  Country: None (occurrence: None)
  Receive Date: 20110524
  Receipt Date: 20110513
  Transmission Date: 20111010
  Serious: Yes (Other)
  Sender: FDA-Public Use
  Company Number: PHFR2011GB02590

PATIENT
  Sex: Male

DRUGS (3)
  1. CLOZARIL [Suspect]
     Indication: SCHIZOPHRENIA
     Dosage: 500 MG, QD
     Route: 048
     Dates: start: 20041223
  2. HYOSCINE HYDROBROMIDE [Concomitant]
     Indication: SALIVARY HYPERSECRETION
     Dosage: 900 UG, UNK
     Route: 048
  3. AMITRIPTYLINE HCL [Concomitant]
     Indication: SALIVARY HYPERSECRETION
     Dosage: 50 MG, UNK
     Route: 048

REACTIONS (4)
  - PORTAL HYPERTENSION [None]
  - DIZZINESS [None]
  - FALL [None]
  - BLOOD URINE PRESENT [None]
